FAERS Safety Report 16122327 (Version 1)
Quarter: 2019Q2

REPORT INFORMATION
  Report Type: Spontaneous
  Country: PR (occurrence: PR)
  Receive Date: 20190326
  Receipt Date: 20190326
  Transmission Date: 20190711
  Serious: No
  Sender: FDA-Public Use
  Company Number: None

PATIENT
  Age: 27 Year
  Sex: Male
  Weight: 67.5 kg

DRUGS (1)
  1. CEFEPIME [Suspect]
     Active Substance: CEFEPIME HYDROCHLORIDE
     Indication: URINARY TRACT INFECTION
     Dosage: ?          OTHER FREQUENCY:EVERY 12 HOURS;?
     Route: 041
     Dates: start: 20190306, end: 20190313

REACTIONS (1)
  - Rash generalised [None]

NARRATIVE: CASE EVENT DATE: 20190313
